FAERS Safety Report 11364365 (Version 5)
Quarter: 2015Q3

REPORT INFORMATION
  Report Type: Spontaneous
  Country: US (occurrence: US)
  Receive Date: 20150811
  Receipt Date: 20150930
  Transmission Date: 20151125
  Serious: Yes (Hospitalization)
  Sender: FDA-Public Use
  Company Number: US-PFIZER INC-2015261624

PATIENT
  Age: 39 Year
  Sex: Male
  Weight: 91 kg

DRUGS (7)
  1. BACLOFEN. [Concomitant]
     Active Substance: BACLOFEN
     Dosage: 10 MG, UNK
     Dates: start: 2014
  2. DICLOFEN [Concomitant]
     Active Substance: DICLOFENAC SODIUM
     Dosage: 10 MG, 3X/DAY
  3. LYRICA [Suspect]
     Active Substance: PREGABALIN
     Indication: NERVE INJURY
     Dosage: 100 MG, 3X/DAY
     Route: 048
     Dates: start: 2013
  4. LYRICA [Suspect]
     Active Substance: PREGABALIN
     Indication: NEURALGIA
     Dosage: UNK
     Route: 048
  5. OXYCODONE [Concomitant]
     Active Substance: OXYCODONE
     Dosage: UNK, ( 7.5-325 ONCE EVERY 5-6 HOURS)
     Dates: start: 2009
  6. OXYCODONE [Concomitant]
     Active Substance: OXYCODONE
     Dosage: UNK, 3X/DAY
  7. LYRICA [Suspect]
     Active Substance: PREGABALIN
     Dosage: 100 MG, 3X/DAY MORNING, AFTERNOON AND AT NIGHT
     Route: 048
     Dates: start: 2012

REACTIONS (3)
  - Injury [Not Recovered/Not Resolved]
  - Feeling abnormal [Unknown]
  - Pain [Not Recovered/Not Resolved]
